FAERS Safety Report 5055149-X (Version None)
Quarter: 2006Q3

REPORT INFORMATION
  Report Type: 
  Country: None (occurrence: None)
  Receive Date: 20060719
  Receipt Date: 20060607
  Transmission Date: 20061208
  Serious: Yes (Hospitalization)
  Sender: FDA-Public Use
  Company Number: FR-ROCHE-451217

PATIENT
  Age: 52 Year
  Sex: Male
  Weight: 70 kg

DRUGS (4)
  1. PEGASYS [Suspect]
     Indication: HEPATITIS C
     Route: 058
     Dates: start: 20060315
  2. PEGASYS [Suspect]
     Route: 058
  3. COPEGUS [Suspect]
     Indication: HEPATITIS C
     Route: 048
     Dates: start: 20060315
  4. SUBUTEX [Concomitant]
     Dosage: DOSAGE REPORTED AS 60 MG PER WEEK.

REACTIONS (2)
  - EYE HAEMORRHAGE [None]
  - FEBRILE BONE MARROW APLASIA [None]
